FAERS Safety Report 8352366-8 (Version None)
Quarter: 2012Q2

REPORT INFORMATION
  Report Type: 
  Country: None (occurrence: None)
  Receive Date: 20120511
  Receipt Date: 20120427
  Transmission Date: 20120825
  Serious: Yes (Hospitalization)
  Sender: FDA-Public Use
  Company Number: FR-PFIZER INC-2012112707

PATIENT
  Sex: Female

DRUGS (2)
  1. GOTU KOLA [Interacting]
     Dosage: UNK
  2. EFFEXOR XR [Suspect]
     Dosage: UNK

REACTIONS (4)
  - DRUG INEFFECTIVE [None]
  - HYPERSOMNIA [None]
  - DRUG INTERACTION [None]
  - FATIGUE [None]
